FAERS Safety Report 8907336 (Version 2)
Quarter: 2012Q4

REPORT INFORMATION
  Report Type: 
  Country: US (occurrence: US)
  Receive Date: 20121114
  Receipt Date: 20121130
  Transmission Date: 20130627
  Serious: Yes (Other)
  Sender: FDA-Public Use
  Company Number: PHEH2012US022327

PATIENT
  Sex: Female
  Weight: 60.77 kg

DRUGS (5)
  1. GLEEVEC [Suspect]
     Indication: GASTROINTESTINAL STROMAL TUMOUR
     Dosage: 400 mg, QD
     Route: 048
  2. CENTRUM SILVER [Concomitant]
  3. LIPITOR [Concomitant]
     Dosage: 10 mg, UNK
  4. CALCIUM 600 [Concomitant]
  5. BABY ASPIRIN [Concomitant]
     Dosage: 81 mg, UNK

REACTIONS (1)
  - Wound complication [Unknown]
